FAERS Safety Report 11444875 (Version 1)
Quarter: 2015Q3

REPORT INFORMATION
  Report Type: Spontaneous
  Country: IN (occurrence: None)
  Receive Date: 20150831
  Receipt Date: 20150831
  Transmission Date: 20151125
  Serious: Yes (Hospitalization)
  Sender: FDA-Public Use
  Company Number: NVST_00069_2015

PATIENT
  Age: 24 Year
  Sex: Female

DRUGS (2)
  1. NORETHINDRONE /00044901/ (NORETHINDRONE) [Suspect]
     Active Substance: NORETHINDRONE
     Indication: POLYCYSTIC OVARIES
     Dosage: 6 WEES 1 DAY
  2. NORETHINDRONE /00044901/ (NORETHINDRONE) [Suspect]
     Active Substance: NORETHINDRONE
     Indication: MENORRHAGIA
     Dosage: 6 WEES 1 DAY

REACTIONS (4)
  - Off label use [None]
  - Hyperhomocysteinaemia [None]
  - Partial seizures [None]
  - Cerebral thrombosis [None]
